FAERS Safety Report 13384835 (Version 1)
Quarter: 2017Q1

REPORT INFORMATION
  Report Type: Spontaneous
  Country: FR (occurrence: FR)
  Receive Date: 20170329
  Receipt Date: 20170329
  Transmission Date: 20170429
  Serious: Yes (Disabling)
  Sender: FDA-Public Use
  Company Number: FR-ELI_LILLY_AND_COMPANY-FR201703007647

PATIENT
  Sex: Male

DRUGS (8)
  1. QUITAXON [Suspect]
     Active Substance: DOXEPIN HYDROCHLORIDE
     Dosage: 0.5 DF, EACH EVENING
     Route: 048
     Dates: start: 201609
  2. SERESTA [Suspect]
     Active Substance: OXAZEPAM
     Indication: PRODUCT USED FOR UNKNOWN INDICATION
     Dosage: 2 DF, FOUR TIMES PER DAY
     Route: 048
     Dates: start: 201609
  3. TERALITHE [Suspect]
     Active Substance: LITHIUM CARBONATE
     Dosage: 750 MG, EACH EVENING
     Route: 048
     Dates: start: 201604
  4. QUITAXON [Suspect]
     Active Substance: DOXEPIN HYDROCHLORIDE
     Indication: PRODUCT USED FOR UNKNOWN INDICATION
     Dosage: 1 DF, EACH MORNING
     Route: 048
     Dates: start: 201609
  5. PRAZEPAM [Suspect]
     Active Substance: PRAZEPAM
     Indication: PRODUCT USED FOR UNKNOWN INDICATION
     Dosage: 1 DF, TID
     Route: 048
     Dates: start: 201604, end: 201609
  6. CYMBALTA [Suspect]
     Active Substance: DULOXETINE HYDROCHLORIDE
     Indication: PRODUCT USED FOR UNKNOWN INDICATION
     Dosage: 50 MG, QD
     Route: 048
     Dates: start: 201604, end: 201609
  7. NOCTAMIDE [Suspect]
     Active Substance: LORMETAZEPAM
     Indication: PRODUCT USED FOR UNKNOWN INDICATION
     Dosage: 2 MG, EACH EVENING
     Route: 048
     Dates: start: 201609
  8. TERALITHE [Suspect]
     Active Substance: LITHIUM CARBONATE
     Indication: POST-TRAUMATIC STRESS DISORDER
     Dosage: 500 MG, EACH MORNING
     Route: 048
     Dates: start: 201604

REACTIONS (2)
  - Confusional state [Not Recovered/Not Resolved]
  - Amnesia [Not Recovered/Not Resolved]
